FAERS Safety Report 6485569-8 (Version None)
Quarter: 2009Q4

REPORT INFORMATION
  Report Type: 
  Country: None (occurrence: None)
  Receive Date: 20091204
  Receipt Date: 20091124
  Transmission Date: 20100525
  Serious: Yes (Hospitalization)
  Sender: FDA-Public Use
  Company Number: 2009EU004199

PATIENT
  Age: 20 Year
  Sex: Female

DRUGS (1)
  1. PROGRAF [Suspect]
     Indication: RENAL TRANSPLANT
     Dosage: 4 MG, BID, UNKNOWN

REACTIONS (4)
  - BLOOD CREATININE INCREASED [None]
  - DRUG PRESCRIBING ERROR [None]
  - SEPSIS [None]
  - WRONG DRUG ADMINISTERED [None]
